FAERS Safety Report 12612922 (Version 2)
Quarter: 2016Q3

REPORT INFORMATION
  Report Type: Spontaneous
  Country: GB (occurrence: GB)
  Receive Date: 20160802
  Receipt Date: 20160828
  Transmission Date: 20161109
  Serious: Yes (Other)
  Sender: FDA-Public Use
  Company Number: GB-DEXPHARM-20161624

PATIENT
  Age: 52 Year
  Sex: Female
  Weight: 56.69 kg

DRUGS (6)
  1. LUBIPROSTONE [Concomitant]
     Active Substance: LUBIPROSTONE
  2. LEVEMIR [Concomitant]
     Active Substance: INSULIN DETEMIR
  3. NOVORAPID [Concomitant]
     Active Substance: INSULIN ASPART
  4. LETROZOLE. [Concomitant]
     Active Substance: LETROZOLE
  5. OMEPRAZOLE. [Suspect]
     Active Substance: OMEPRAZOLE
     Indication: GASTRITIS EROSIVE
     Dosage: DAILY DOSE: 20 MG MILLGRAM(S) EVERY DAYS
     Route: 048
     Dates: start: 20160624, end: 20160628
  6. RANITIDINE. [Suspect]
     Active Substance: RANITIDINE
     Indication: GASTRITIS EROSIVE
     Route: 048
     Dates: end: 20160704

REACTIONS (3)
  - Pruritus [Recovered/Resolved]
  - Myalgia [Recovering/Resolving]
  - Blood glucose increased [Recovering/Resolving]

NARRATIVE: CASE EVENT DATE: 20160625
